FAERS Safety Report 20656125 (Version 1)
Quarter: 2022Q1

REPORT INFORMATION
  Report Type: Spontaneous
  Country: US (occurrence: US)
  Receive Date: 20220330
  Receipt Date: 20220330
  Transmission Date: 20220423
  Serious: No
  Sender: FDA-Public Use
  Company Number: US-ALKEM LABORATORIES LIMITED-US-ALKEM-2022-01897

PATIENT
  Age: 70 Year
  Sex: Male

DRUGS (3)
  1. DABIGATRAN ETEXILATE MESYLATE [Suspect]
     Active Substance: DABIGATRAN ETEXILATE MESYLATE
     Indication: Product used for unknown indication
     Dosage: 150 MILLIGRAM, BID
     Route: 065
  2. PRIMIDONE [Suspect]
     Active Substance: PRIMIDONE
     Indication: Product used for unknown indication
     Dosage: 200 MILLIGRAM, BID
     Route: 065
  3. PRIMIDONE [Suspect]
     Active Substance: PRIMIDONE
     Dosage: UNK (200 MG IN THE MORNING AND 250 MG IN THE EVENING)
     Route: 065

REACTIONS (2)
  - Liver function test increased [Recovered/Resolved]
  - Drug interaction [Unknown]
